FAERS Safety Report 4497354-7 (Version None)
Quarter: 2004Q4

REPORT INFORMATION
  Report Type: 
  Country: None (occurrence: None)
  Receive Date: 20041110
  Receipt Date: 20041101
  Transmission Date: 20050328
  Serious: Yes (Other)
  Sender: FDA-Public Use
  Company Number: US-ABBOTT-04P-163-0279423-00

PATIENT
  Sex: Female
  Weight: 100 kg

DRUGS (7)
  1. HUMIRA [Suspect]
     Indication: JUVENILE ARTHRITIS
     Route: 058
     Dates: start: 20040501, end: 20041017
  2. PREDNISONE [Concomitant]
     Indication: JUVENILE ARTHRITIS
  3. ROSIGLITAZONE MALEATE [Concomitant]
     Indication: DIABETES MELLITUS
  4. LEVOTHYROXINE SODIUM [Concomitant]
     Indication: HYPOTHYROIDISM
  5. BLOOD PRESSURE MEDICINE [Concomitant]
     Indication: HYPERTENSION
  6. AZATHIOPRINE [Concomitant]
     Indication: ANTIINFLAMMATORY THERAPY
  7. NAPROXEN SODIUM [Concomitant]
     Indication: PAIN

REACTIONS (2)
  - PHARYNGOLARYNGEAL PAIN [None]
  - TOOTH ABSCESS [None]
